FAERS Safety Report 9788319 (Version 1)
Quarter: 2013Q4

REPORT INFORMATION
  Report Type: Report from Study
  Country: US (occurrence: US)
  Receive Date: 20131230
  Receipt Date: 20131230
  Transmission Date: 20140711
  Serious: Yes (Other)
  Sender: FDA-Public Use
  Company Number: US-BAYER-2013-156601

PATIENT
  Sex: Female

DRUGS (2)
  1. ACETYLSALICYLIC ACID (} 100 MG) [Suspect]
  2. CLOPIDOGREL [Suspect]

REACTIONS (3)
  - Lymphopenia [None]
  - Nausea [None]
  - Oedema [None]
